FAERS Safety Report 5506023-3 (Version None)
Quarter: 2007Q4

REPORT INFORMATION
  Report Type: 
  Country: None (occurrence: None)
  Receive Date: 20071105
  Receipt Date: 20071029
  Transmission Date: 20080405
  Serious: Yes (Hospitalization)
  Sender: FDA-Public Use
  Company Number: DE-AVENTIS-200712681DE

PATIENT
  Age: 62 Year
  Sex: Female
  Weight: 101 kg

DRUGS (6)
  1. DOCETAXEL [Suspect]
     Indication: BREAST CANCER
     Dosage: DOSE: NOT REPORTED
     Dates: start: 20070711, end: 20070711
  2. PROVASIN TAB [Concomitant]
     Indication: HYPERTENSION
  3. BELOC                              /00376903/ [Concomitant]
     Indication: HYPERTENSION
     Dosage: DOSE: NOT REPORTED
  4. UNAT                               /01036501/ [Concomitant]
  5. ALLO [Concomitant]
     Indication: GOUT
  6. ASPIRIN [Concomitant]

REACTIONS (3)
  - ARTHRALGIA [None]
  - DEPRESSION [None]
  - FATIGUE [None]
